FAERS Safety Report 12729797 (Version 1)
Quarter: 2016Q3

REPORT INFORMATION
  Report Type: Spontaneous
  Country: US (occurrence: US)
  Receive Date: 20160909
  Receipt Date: 20160909
  Transmission Date: 20161109
  Serious: No
  Sender: FDA-Public Use
  Company Number: US-PFIZER INC-2016419101

PATIENT
  Sex: Female

DRUGS (1)
  1. ADVIL [Suspect]
     Active Substance: IBUPROFEN
     Dosage: UNK

REACTIONS (5)
  - Swollen tongue [Unknown]
  - Gingival discomfort [Unknown]
  - Pruritus [Unknown]
  - Oesophageal oedema [Unknown]
  - Tooth disorder [Unknown]
